FAERS Safety Report 8504835-5 (Version None)
Quarter: 2012Q3

REPORT INFORMATION
  Report Type: 
  Country: None (occurrence: None)
  Receive Date: 20120712
  Receipt Date: 20120629
  Transmission Date: 20120928
  Serious: Yes (Other)
  Sender: FDA-Public Use
  Company Number: AT-PAR PHARMACEUTICAL, INC-2012SCPR004490

PATIENT

DRUGS (8)
  1. DEXAMETHASONE [Suspect]
     Indication: MULTIPLE MYELOMA
     Dosage: 40 MG, ON DAYS 1-4, 9-12, AND 17-20 FOR THE FIRST FOUR CYCLES AND ON DAYS 1-4 THEREAFTER
     Route: 048
     Dates: start: 20040601, end: 20051001
  2. LENALIDOMIDE [Suspect]
     Indication: MULTIPLE MYELOMA
     Dosage: 25 MG, ON DAYS 1-21 OF EACH 28-DAY CYCLE
     Route: 048
     Dates: start: 20051101
  3. LENALIDOMIDE [Suspect]
     Dosage: 15 MG DAILY ON DAYS 1-21
     Route: 048
     Dates: end: 20100301
  4. DEXAMETHASONE [Suspect]
     Dosage: 20 MG ON DAYS 1-4 OF EACH CYCLE
     Route: 048
  5. PAMIDRONATE DISODIUM [Concomitant]
     Indication: PRODUCT USED FOR UNKNOWN INDICATION
     Dosage: 90 MG, FOR 34 CYCLES
     Route: 065
  6. DEXAMETHASONE [Suspect]
     Dosage: 12 MG ON DAYS 1-4 OF EACH CYCLE
     Route: 048
     Dates: end: 20100301
  7. LENALIDOMIDE [Suspect]
     Dosage: 10 MG, DAILY ON DAYS 1-21
     Route: 048
  8. LENALIDOMIDE [Suspect]
     Dosage: 5 MG, DAILY ON DAYS 1-21
     Route: 048
     Dates: end: 20100301

REACTIONS (20)
  - MULTIPLE MYELOMA [None]
  - DERMATITIS BULLOUS [None]
  - DIARRHOEA [None]
  - MUSCLE SPASMS [None]
  - NAUSEA [None]
  - NEUTROPENIA [None]
  - OEDEMA PERIPHERAL [None]
  - PERIPHERAL SENSORY NEUROPATHY [None]
  - LUMBAR VERTEBRAL FRACTURE [None]
  - LEUKOPENIA [None]
  - HERPES VIRUS INFECTION [None]
  - HYPERTENSION [None]
  - BONE PAIN [None]
  - DECREASED APPETITE [None]
  - VISUAL IMPAIRMENT [None]
  - POLYURIA [None]
  - ANAEMIA [None]
  - MICTURITION URGENCY [None]
  - CONSTIPATION [None]
  - MUSCULAR WEAKNESS [None]
